FAERS Safety Report 9458435 (Version 1)
Quarter: 2013Q3

REPORT INFORMATION
  Report Type: Spontaneous
  Country: DK (occurrence: DK)
  Receive Date: 20130814
  Receipt Date: 20130814
  Transmission Date: 20140515
  Serious: Yes (Hospitalization)
  Sender: FDA-Public Use
  Company Number: PHHY2013DK085221

PATIENT
  Age: 22 Year
  Sex: Female

DRUGS (1)
  1. PANCILLIN [Suspect]
     Indication: INFECTION
     Dosage: 1 DF, TID
     Route: 048
     Dates: start: 20130123, end: 20130123

REACTIONS (5)
  - Malaise [Recovered/Resolved]
  - Erythema [Recovered/Resolved]
  - Pruritus [Recovered/Resolved]
  - Diarrhoea [Recovered/Resolved]
  - Hypersensitivity [Recovered/Resolved]
